FAERS Safety Report 7301689-X (Version None)
Quarter: 2011Q1

REPORT INFORMATION
  Report Type: 
  Country: None (occurrence: None)
  Receive Date: 20110218
  Receipt Date: 20110208
  Transmission Date: 20110831
  Serious: Yes (Disabling, Other)
  Sender: FDA-Public Use
  Company Number: US-BAYER-201033822NA

PATIENT
  Sex: Male

DRUGS (4)
  1. NEXAVAR [Suspect]
     Indication: HEPATIC NEOPLASM MALIGNANT
     Route: 048
     Dates: start: 20100909, end: 20100901
  2. NEXAVAR [Suspect]
     Dosage: 200 MG, BID
     Route: 048
     Dates: start: 20100827, end: 20101130
  3. NEXAVAR [Suspect]
     Dosage: 400 MG DAILY DOSE
     Route: 048
     Dates: start: 20100901
  4. NEXAVAR [Suspect]
     Route: 048
     Dates: end: 20101026

REACTIONS (5)
  - ABDOMINAL PAIN UPPER [None]
  - OEDEMA PERIPHERAL [None]
  - PAIN IN EXTREMITY [None]
  - ABASIA [None]
  - JOINT SWELLING [None]
